FAERS Safety Report 18822774 (Version 1)
Quarter: 2021Q1

REPORT INFORMATION
  Report Type: Spontaneous
  Country: US (occurrence: US)
  Receive Date: 20210202
  Receipt Date: 20210202
  Transmission Date: 20210419
  Serious: Yes (Other)
  Sender: FDA-Public Use
  Company Number: US-SA-2021SA020637

PATIENT
  Age: 60 Year
  Sex: Male

DRUGS (1)
  1. ZANTAC [Suspect]
     Active Substance: RANITIDINE HYDROCHLORIDE
     Indication: DYSPEPSIA
     Dosage: 150 MG, UNKNOWN AT THIS TIME
     Dates: start: 198407, end: 202005

REACTIONS (5)
  - Renal cancer stage II [Unknown]
  - Gastric cancer stage II [Unknown]
  - Oesophageal carcinoma [Unknown]
  - Gastrointestinal carcinoma [Unknown]
  - Colorectal cancer stage II [Unknown]

NARRATIVE: CASE EVENT DATE: 20120909
